FAERS Safety Report 6373770-3 (Version None)
Quarter: 2009Q3

REPORT INFORMATION
  Report Type: 
  Country: None (occurrence: None)
  Receive Date: 20090924
  Receipt Date: 20090709
  Transmission Date: 20100115
  Serious: Yes (Other)
  Sender: FDA-Public Use
  Company Number: US-ASTRAZENECA-2009UW13461

PATIENT
  Age: 48 Year
  Sex: Male
  Weight: 109.3 kg

DRUGS (4)
  1. SEROQUEL [Suspect]
     Indication: INSOMNIA
     Dosage: 200 MG, 400 MG TO 600 MG
     Route: 048
     Dates: start: 20020101
  2. SEROQUEL [Suspect]
     Indication: POST-TRAUMATIC STRESS DISORDER
     Dosage: 200 MG, 400 MG TO 600 MG
     Route: 048
     Dates: start: 20020101
  3. CLONAZEPAM [Concomitant]
     Dates: start: 20020101
  4. EFFEXOR [Concomitant]
     Dosage: 75 MG TO 150 MG
     Dates: start: 20020101

REACTIONS (3)
  - BLOOD CHOLESTEROL INCREASED [None]
  - DIABETIC COMA [None]
  - TYPE 2 DIABETES MELLITUS [None]
